FAERS Safety Report 16233338 (Version 1)
Quarter: 2019Q2

REPORT INFORMATION
  Report Type: Spontaneous
  Country: US (occurrence: US)
  Receive Date: 20190319
  Receipt Date: 20190319
  Transmission Date: 20190711
  Serious: No
  Sender: FDA-Public Use
  Company Number: None

PATIENT
  Age: 79 Year
  Sex: Female
  Weight: 63.96 kg

DRUGS (11)
  1. CALCIUM [Concomitant]
     Active Substance: CALCIUM
  2. GRAPESEED COMPLEX [Concomitant]
  3. BIOTIN [Concomitant]
     Active Substance: BIOTIN
  4. ALENDRONATE [Concomitant]
     Active Substance: ALENDRONATE SODIUM
  5. LEVOTHYROXINE. [Concomitant]
     Active Substance: LEVOTHYROXINE
  6. ASPIRIN. [Concomitant]
     Active Substance: ASPIRIN
  7. D3 1000 IU [Concomitant]
  8. ATROVASTATIN [Concomitant]
     Active Substance: ATORVASTATIN CALCIUM
  9. LOSARTAN POTASSIUM 25MG [Suspect]
     Active Substance: LOSARTAN POTASSIUM
     Indication: HYPERTENSION
     Dosage: ?          QUANTITY:1 PILL;?
     Route: 048
     Dates: start: 20190218, end: 20190225
  10. VITAMIN B12 [Concomitant]
     Active Substance: CYANOCOBALAMIN
  11. METOPROLOL ER [Concomitant]
     Active Substance: METOPROLOL SUCCINATE

REACTIONS (3)
  - Rhinorrhoea [None]
  - Cough [None]
  - Sneezing [None]

NARRATIVE: CASE EVENT DATE: 20190225
